FAERS Safety Report 13821361 (Version 2)
Quarter: 2017Q3

REPORT INFORMATION
  Report Type: Other
  Country: GB (occurrence: GB)
  Receive Date: 20170801
  Receipt Date: 20170821
  Transmission Date: 20171127
  Serious: Yes (Other)
  Sender: FDA-Public Use
  Company Number: GB-APOTEX-2017AP015870

PATIENT
  Age: 70 Year
  Sex: Male

DRUGS (1)
  1. CLOPIDOGREL APOTEX [Suspect]
     Active Substance: CLOPIDOGREL BISULFATE
     Indication: PRODUCT USED FOR UNKNOWN INDICATION
     Route: 048

REACTIONS (6)
  - Cerebral infarction [Unknown]
  - Confusional state [Unknown]
  - Carotid artery stenosis [Unknown]
  - Drug ineffective [Unknown]
  - Fall [Unknown]
  - Carotid artery dissection [Unknown]
